FAERS Safety Report 5652676-9 (Version None)
Quarter: 2008Q1

REPORT INFORMATION
  Report Type: 
  Country: None (occurrence: None)
  Receive Date: 20080305
  Receipt Date: 20080305
  Transmission Date: 20080703
  Serious: Yes (Hospitalization)
  Sender: FDA-Public Use
  Company Number: None

PATIENT
  Age: 38 Year
  Sex: Female

DRUGS (2)
  1. DIPRIVAN [Suspect]
     Dosage: INTRAVENOUS;;0;0
     Route: 042
     Dates: start: 20080227, end: 20080227
  2. DURAGESIC-12 [Suspect]
     Dosage: INTRAVENOUS;;0;0
     Route: 042
     Dates: start: 20080227, end: 20080227

REACTIONS (1)
  - PRURITUS [None]
